FAERS Safety Report 4759857-7 (Version None)
Quarter: 2005Q3

REPORT INFORMATION
  Report Type: 
  Country: None (occurrence: None)
  Receive Date: 20050831
  Receipt Date: 20050831
  Transmission Date: 20060218
  Serious: Yes (Hospitalization)
  Sender: FDA-Public Use
  Company Number: None

PATIENT
  Age: 58 Year
  Sex: Male
  Weight: 88.2246 kg

DRUGS (20)
  1. MYCOPHENOLATE MOFETIL  500MG  ROCHE US PHARMACEUTICALS [Suspect]
     Indication: IMMUNOSUPPRESSANT DRUG THERAPY
     Dosage: 500MG  TWICE DAILY PO
     Route: 048
     Dates: start: 20050809, end: 20050815
  2. MYCOPHENOLATE MOFETIL  500MG  ROCHE US PHARMACEUTICALS [Suspect]
     Indication: RENAL TRANSPLANT
     Dosage: 500MG  TWICE DAILY PO
     Route: 048
     Dates: start: 20050809, end: 20050815
  3. MYCOPHENOLATE MOFETIL  500MG  ROCHE US PHARMACEUTICALS [Suspect]
     Indication: IMMUNOSUPPRESSANT DRUG THERAPY
     Dosage: 500MG  TWICE DAILY PO
     Route: 048
     Dates: start: 20050823, end: 20050830
  4. MYCOPHENOLATE MOFETIL  500MG  ROCHE US PHARMACEUTICALS [Suspect]
     Indication: RENAL TRANSPLANT
     Dosage: 500MG  TWICE DAILY PO
     Route: 048
     Dates: start: 20050823, end: 20050830
  5. FUROSEMIDE [Concomitant]
  6. DIURETIC [Concomitant]
  7. CYCLOSPORINE [Concomitant]
  8. ACETAMINOPHEN AND HYDROCODONE BITARTRATE [Concomitant]
  9. HUMULIN R [Concomitant]
  10. NOVOL [Concomitant]
  11. ARTIFICIAL OCCULAR OINT. [Concomitant]
  12. HEPARIN [Concomitant]
  13. ALBUTEROL [Concomitant]
  14. IPRATROPIUM BROMIDE [Concomitant]
  15. NOVOLIN [Concomitant]
  16. HYDRALAZINE [Concomitant]
  17. ATENOLOL [Concomitant]
  18. ISOSORBIDE DINITRATE [Concomitant]
  19. NIFEDIPINE [Concomitant]
  20. PREDNISONE [Concomitant]

REACTIONS (4)
  - ACUTE RESPIRATORY DISTRESS SYNDROME [None]
  - DIALYSIS [None]
  - OXYGEN SATURATION DECREASED [None]
  - RENAL FAILURE [None]
